FAERS Safety Report 10349466 (Version 2)
Quarter: 2014Q3

REPORT INFORMATION
  Report Type: Spontaneous
  Country: TR (occurrence: None)
  Receive Date: 20140728
  Receipt Date: 20140807
  Transmission Date: 20150326
  Serious: Yes (Death)
  Sender: FDA-Public Use
  Company Number: OTH-LIT-2014021

PATIENT
  Age: 2 Month
  Sex: Female

DRUGS (4)
  1. VITAMIN B12 [Concomitant]
     Active Substance: CYANOCOBALAMIN
  2. BETAINE [Suspect]
     Active Substance: BETAINE
     Indication: METHYLENETETRAHYDROFOLATE REDUCTASE DEFICIENCY
  3. FOLINIC ACID [Concomitant]
     Active Substance: LEUCOVORIN
  4. METHIONINE [Concomitant]
     Active Substance: METHIONINE

REACTIONS (3)
  - Pneumonia [None]
  - Sepsis [None]
  - Death [None]
